FAERS Safety Report 16877863 (Version 1)
Quarter: 2019Q4

REPORT INFORMATION
  Report Type: Report from Study
  Country: GB (occurrence: GB)
  Receive Date: 20191002
  Receipt Date: 20191002
  Transmission Date: 20200122
  Serious: Yes (Hospitalization)
  Sender: FDA-Public Use
  Company Number: PHHY2019GB166000

PATIENT
  Sex: Female

DRUGS (1)
  1. COSENTYX [Suspect]
     Active Substance: SECUKINUMAB
     Indication: PSORIATIC ARTHROPATHY
     Dosage: 300 MG, QW (PRE FILLED PEN) (ON WEEKS 0,1,2,3, 4 THEN ONCE MONTHLY)
     Route: 058
     Dates: start: 20190628

REACTIONS (7)
  - Headache [Not Recovered/Not Resolved]
  - Chest pain [Unknown]
  - Pyrexia [Unknown]
  - Neck pain [Unknown]
  - Palpitations [Unknown]
  - Tachycardia [Unknown]
  - Fibromyalgia [Unknown]
